FAERS Safety Report 10196596 (Version 1)
Quarter: 2014Q2

REPORT INFORMATION
  Report Type: Spontaneous
  Country: BR (occurrence: BR)
  Receive Date: 20140527
  Receipt Date: 20140527
  Transmission Date: 20141212
  Serious: Yes (Hospitalization, Other)
  Sender: FDA-Public Use
  Company Number: BR-PFIZER INC-2014139188

PATIENT
  Age: 68 Year
  Sex: Female
  Weight: 79 kg

DRUGS (3)
  1. LYRICA [Suspect]
     Indication: PAIN
     Dosage: 75 MG, 3X/DAY (1 TABLET IN THE MORNING AND 2 TABLETS AT NIGHT)
     Route: 048
     Dates: start: 2012
  2. LOSARTAN [Concomitant]
     Indication: HYPERTENSION
     Dosage: 2 TABLETS, DAILY
     Dates: start: 2005
  3. LIPANON [Concomitant]
     Indication: BLOOD CHOLESTEROL ABNORMAL
     Dosage: 1 DF, DAILY
     Dates: start: 20140420

REACTIONS (2)
  - Spinal disorder [Unknown]
  - Pain in extremity [Unknown]
